FAERS Safety Report 24043840 (Version 5)
Quarter: 2024Q3

REPORT INFORMATION
  Report Type: Report from Study
  Country: US (occurrence: US)
  Receive Date: 20240703
  Receipt Date: 20240830
  Transmission Date: 20241017
  Serious: Yes (Hospitalization)
  Sender: DECIPHERA PHARMACEUTICALS
  Company Number: US-DECIPHERA PHARMACEUTICALS LLC-2024US000540

PATIENT
  Age: 62 Year
  Sex: Male

DRUGS (1)
  1. QINLOCK [Suspect]
     Active Substance: RIPRETINIB
     Indication: Gastrointestinal stromal tumour
     Dosage: 150 MILLIGRAM, QD
     Route: 048
     Dates: start: 20240513, end: 202408

REACTIONS (10)
  - Coronary artery occlusion [Unknown]
  - Myocardial infarction [Unknown]
  - Renal function test abnormal [Not Recovered/Not Resolved]
  - Blood test abnormal [Unknown]
  - Dehydration [Unknown]
  - Rash pruritic [Unknown]
  - Hypertension [Unknown]
  - Alopecia [Unknown]
  - Muscle spasms [Unknown]
  - Abdominal pain [Not Recovered/Not Resolved]

NARRATIVE: CASE EVENT DATE: 20240101
